FAERS Safety Report 25361406 (Version 5)
Quarter: 2025Q4

REPORT INFORMATION
  Report Type: Report from Study
  Country: EU (occurrence: EU)
  Receive Date: 20250527
  Receipt Date: 20251202
  Transmission Date: 20260117
  Serious: Yes (Hospitalization, Other)
  Sender: ABBVIE
  Company Number: EU-ABBVIE-6297562

PATIENT
  Age: 69 Year
  Sex: Female

DRUGS (2)
  1. CARBIDOPA\LEVODOPA [Suspect]
     Active Substance: CARBIDOPA\LEVODOPA
     Indication: Parkinson^s disease
     Dosage: 8 ML MORNING DOSE, 2.5 ML/HOURS OF CONTINUOUS DOSE AND 3.8 ML OF EXTRA DOSE
     Route: 050
     Dates: start: 20151130
  2. CARBIDOPA\LEVODOPA [Suspect]
     Active Substance: CARBIDOPA\LEVODOPA
     Route: 050

REACTIONS (3)
  - Haematological malignancy [Recovered/Resolved with Sequelae]
  - Bone neoplasm [Recovered/Resolved with Sequelae]
  - Pain [Recovered/Resolved]

NARRATIVE: CASE EVENT DATE: 20250420
